FAERS Safety Report 15030702 (Version 3)
Quarter: 2019Q1

REPORT INFORMATION
  Report Type: Spontaneous
  Country: GB (occurrence: GB)
  Receive Date: 20180619
  Receipt Date: 20190304
  Transmission Date: 20190417
  Serious: Yes (Other)
  Sender: FDA-Public Use
  Company Number: GB-MYLANLABS-2018M1040263

PATIENT
  Age: 7 Month
  Sex: Female

DRUGS (5)
  1. METHYLPREDNISOLONE. [Suspect]
     Active Substance: METHYLPREDNISOLONE
     Indication: PRODUCT USED FOR UNKNOWN INDICATION
     Dosage: 3 DF, UNK, 30 MG/KG/WT
     Route: 042
  2. TINZAPARIN [Suspect]
     Active Substance: TINZAPARIN
     Indication: PROPHYLAXIS
     Dosage: UNK
     Route: 065
  3. PREDNISOLONE. [Suspect]
     Active Substance: PREDNISOLONE
     Indication: PRODUCT USED FOR UNKNOWN INDICATION
     Dosage: UNK, TAPERING DOSE
     Route: 048
  4. ACETYLSALICYLIC ACID [Suspect]
     Active Substance: ASPIRIN
     Indication: PROPHYLAXIS
  5. ACETYLSALICYLIC ACID [Suspect]
     Active Substance: ASPIRIN
     Indication: KAWASAKI^S DISEASE
     Dosage: UNK
     Route: 065

REACTIONS (7)
  - Drug ineffective for unapproved indication [Unknown]
  - Cerebrovascular accident [Unknown]
  - Basilar artery occlusion [Unknown]
  - Embolism [Unknown]
  - Off label use [Unknown]
  - Intentional product misuse [Unknown]
  - Infarction [Unknown]
